FAERS Safety Report 15851910 (Version 1)
Quarter: 2019Q1

REPORT INFORMATION
  Report Type: Report from Study
  Country: US (occurrence: US)
  Receive Date: 20190122
  Receipt Date: 20190122
  Transmission Date: 20190417
  Serious: No
  Sender: FDA-Public Use
  Company Number: US-ROCHE-2158246

PATIENT
  Age: 71 Year
  Sex: Female

DRUGS (2)
  1. OCREVUS [Suspect]
     Active Substance: OCRELIZUMAB
     Indication: MULTIPLE SCLEROSIS
     Dosage: ONGOING:UNKNOWN
     Route: 042
     Dates: start: 20180627
  2. OCREVUS [Suspect]
     Active Substance: OCRELIZUMAB
     Route: 042
     Dates: start: 20180725

REACTIONS (11)
  - Pyrexia [Recovered/Resolved]
  - Musculoskeletal pain [Recovered/Resolved]
  - Neck pain [Unknown]
  - Herpes zoster [Not Recovered/Not Resolved]
  - Headache [Recovered/Resolved]
  - Pain [Recovered/Resolved]
  - Infusion site pain [Unknown]
  - Myofascial pain syndrome [Recovered/Resolved]
  - Muscle spasms [Recovered/Resolved]
  - Vasodilatation [Unknown]
  - Fatigue [Not Recovered/Not Resolved]

NARRATIVE: CASE EVENT DATE: 20180701
